FAERS Safety Report 11854897 (Version 1)
Quarter: 2015Q4

REPORT INFORMATION
  Report Type: Spontaneous
  Country: US (occurrence: US)
  Receive Date: 20151221
  Receipt Date: 20151221
  Transmission Date: 20160305
  Serious: Yes (Other)
  Sender: FDA-Public Use
  Company Number: US-DRREDDYS-USA/USA/15/0054780

PATIENT
  Age: 65 Year
  Sex: Male

DRUGS (2)
  1. DOCETAXEL. [Suspect]
     Active Substance: DOCETAXEL
     Indication: DEDIFFERENTIATED LIPOSARCOMA
     Route: 042
  2. GEMCITABINE [Suspect]
     Active Substance: GEMCITABINE\GEMCITABINE HYDROCHLORIDE
     Indication: DEDIFFERENTIATED LIPOSARCOMA
     Route: 042

REACTIONS (3)
  - Infusion site erythema [Recovering/Resolving]
  - Neuropathy peripheral [Unknown]
  - Infusion site extravasation [Unknown]
